FAERS Safety Report 7730148-5 (Version None)
Quarter: 2011Q3

REPORT INFORMATION
  Report Type: 
  Country: None (occurrence: None)
  Receive Date: 20110906
  Receipt Date: 20110829
  Transmission Date: 20111222
  Serious: Yes (Hospitalization)
  Sender: FDA-Public Use
  Company Number: PHHY2011DE39394

PATIENT
  Sex: Female
  Weight: 45 kg

DRUGS (1)
  1. SANDOSTATIN LAR [Suspect]

REACTIONS (2)
  - HAEMOGLOBIN DECREASED [None]
  - GENERAL PHYSICAL HEALTH DETERIORATION [None]
